FAERS Safety Report 11180337 (Version 1)
Quarter: 2015Q2

REPORT INFORMATION
  Report Type: Spontaneous
  Country: DK (occurrence: None)
  Receive Date: 20150609
  Receipt Date: 20150609
  Transmission Date: 20150821
  Serious: Yes (Hospitalization)
  Sender: FDA-Public Use
  Company Number: 2015FE01726

PATIENT
  Age: 66 Year
  Sex: Female

DRUGS (1)
  1. PICOPREP [Suspect]
     Active Substance: CITRIC ACID MONOHYDRATE\MAGNESIUM OXIDE\SODIUM PICOSULFATE
     Indication: PROPHYLAXIS
     Dosage: STRENGTH 10 MG+3,5 G+12 G
     Route: 048
     Dates: start: 20141102

REACTIONS (6)
  - Blood alkaline phosphatase increased [None]
  - Alanine aminotransferase increased [None]
  - Aspartate aminotransferase increased [None]
  - Influenza [None]
  - Vomiting [None]
  - Liver disorder [None]

NARRATIVE: CASE EVENT DATE: 20141110
